FAERS Safety Report 14245030 (Version 3)
Quarter: 2017Q4

REPORT INFORMATION
  Report Type: Spontaneous
  Country: IT (occurrence: IT)
  Receive Date: 20171202
  Receipt Date: 20171229
  Transmission Date: 20180321
  Serious: Yes (Death, Hospitalization, Other)
  Sender: FDA-Public Use
  Company Number: IT-AUROBINDO-AUR-APL-2017-42948

PATIENT
  Age: 52 Year
  Sex: Male

DRUGS (31)
  1. MIRTAZAPINE. [Suspect]
     Active Substance: MIRTAZAPINE
     Indication: JC VIRUS TEST POSITIVE
     Dosage: ()
     Route: 065
  2. VYTORIN [Concomitant]
     Active Substance: EZETIMIBE\SIMVASTATIN
     Route: 048
  3. BACTRIM [Concomitant]
     Active Substance: SULFAMETHOXAZOLE\TRIMETHOPRIM
     Dosage: ()
     Route: 048
  4. LANSOX [Concomitant]
     Active Substance: LANSOPRAZOLE
     Indication: PROPHYLAXIS AGAINST GASTROINTESTINAL ULCER
     Route: 048
  5. ENDOXAN                            /00021101/ [Suspect]
     Active Substance: CYCLOPHOSPHAMIDE
     Indication: B-CELL LYMPHOMA
     Dosage: THREE CYCLES ; CYCLICAL
     Route: 065
     Dates: start: 20170501, end: 20170721
  6. BACTRIM [Concomitant]
     Active Substance: SULFAMETHOXAZOLE\TRIMETHOPRIM
     Dosage: UNK
  7. LANSOX [Concomitant]
     Active Substance: LANSOPRAZOLE
     Route: 048
  8. LANSOX [Concomitant]
     Active Substance: LANSOPRAZOLE
     Dosage: ()
     Route: 048
  9. VYTORIN [Concomitant]
     Active Substance: EZETIMIBE\SIMVASTATIN
     Dosage: PERIOD OF THERAPY WAS 1 YEAR ()
     Route: 048
  10. NEO-LOTAN PLUS [Concomitant]
     Active Substance: HYDROCHLOROTHIAZIDE\LOSARTAN POTASSIUM
     Dosage: PERIOD OF THERAPY WAS 1 YEAR ()
     Route: 048
  11. BACTRIM [Concomitant]
     Active Substance: SULFAMETHOXAZOLE\TRIMETHOPRIM
     Dosage: ()
     Route: 048
  12. LANSOX [Concomitant]
     Active Substance: LANSOPRAZOLE
     Route: 048
  13. DEPAKIN [Concomitant]
     Active Substance: VALPROATE SODIUM
     Indication: BIPOLAR DISORDER
     Dosage: 500 MG, UNK
     Route: 048
  14. FLUDARABINE [Suspect]
     Active Substance: FLUDARABINE PHOSPHATE
     Indication: B-CELL LYMPHOMA
     Dosage: THREE CYCLES () ; CYCLICAL
     Route: 065
     Dates: start: 20170501, end: 20170721
  15. MIRTAZAPINE. [Suspect]
     Active Substance: MIRTAZAPINE
     Indication: PROGRESSIVE MULTIFOCAL LEUKOENCEPHALOPATHY
     Dosage: ()
     Route: 065
  16. VYTORIN [Concomitant]
     Active Substance: EZETIMIBE\SIMVASTATIN
     Dosage: ()
     Route: 048
  17. BACTRIM [Concomitant]
     Active Substance: SULFAMETHOXAZOLE\TRIMETHOPRIM
     Indication: ANTIBIOTIC PROPHYLAXIS
     Route: 048
  18. DEPAKIN [Concomitant]
     Active Substance: VALPROATE SODIUM
     Dosage: CHRONO TABLET BLISTER OF 30 TABLETS. PERIOD OF THERAPY WAS 10 YEARS
     Route: 048
  19. MABTHERA [Suspect]
     Active Substance: RITUXIMAB
     Indication: B-CELL LYMPHOMA
     Dosage: INJECTABLE SOLUTION, THREE CYCLES ; CYCLICAL
     Route: 042
     Dates: start: 20170501, end: 20170721
  20. VYTORIN [Concomitant]
     Active Substance: EZETIMIBE\SIMVASTATIN
     Indication: DYSLIPIDAEMIA
     Route: 048
  21. VYTORIN [Concomitant]
     Active Substance: EZETIMIBE\SIMVASTATIN
     Dosage: PERIOD OF THERAPY WAS 1 YEAR
     Route: 048
  22. BACTRIM [Concomitant]
     Active Substance: SULFAMETHOXAZOLE\TRIMETHOPRIM
     Route: 048
  23. NEO-LOTAN PLUS [Concomitant]
     Active Substance: HYDROCHLOROTHIAZIDE\LOSARTAN POTASSIUM
     Dosage: PERIOD OF THERAPY WAS 1 YEAR
     Route: 048
  24. NEO-LOTAN PLUS [Concomitant]
     Active Substance: HYDROCHLOROTHIAZIDE\LOSARTAN POTASSIUM
     Route: 048
  25. LANSOX [Concomitant]
     Active Substance: LANSOPRAZOLE
     Dosage: ()
     Route: 048
  26. HALDOL [Concomitant]
     Active Substance: HALOPERIDOL
     Indication: BIPOLAR DISORDER
     Dosage: 75 MG, UNK
     Route: 030
  27. BACTRIM [Concomitant]
     Active Substance: SULFAMETHOXAZOLE\TRIMETHOPRIM
     Route: 048
  28. DEPAKIN [Concomitant]
     Active Substance: VALPROATE SODIUM
     Dosage: CHRONO TABLET BLISTER OF 30 TABLETS. PERIOD OF THERAPY WAS 10 YEARS
     Route: 048
  29. CYCLOPHOSPHAMIDE. [Suspect]
     Active Substance: CYCLOPHOSPHAMIDE
     Indication: B-CELL LYMPHOMA
     Dosage: UNK
     Dates: start: 20170501, end: 20170721
  30. NEO-LOTAN PLUS [Concomitant]
     Active Substance: HYDROCHLOROTHIAZIDE\LOSARTAN POTASSIUM
     Indication: HYPERTENSION
     Dosage: UNK
  31. NEO-LOTAN PLUS [Concomitant]
     Active Substance: HYDROCHLOROTHIAZIDE\LOSARTAN POTASSIUM
     Dosage: ()
     Route: 048

REACTIONS (5)
  - Neutropenia [Unknown]
  - Respiratory failure [Unknown]
  - Progressive multifocal leukoencephalopathy [Fatal]
  - Sepsis [Unknown]
  - JC virus test positive [Fatal]

NARRATIVE: CASE EVENT DATE: 201708
